FAERS Safety Report 9259127 (Version 1)
Quarter: 2013Q2

REPORT INFORMATION
  Report Type: Spontaneous
  Country: US (occurrence: US)
  Receive Date: 20130426
  Receipt Date: 20130426
  Transmission Date: 20140414
  Serious: Yes (Death, Hospitalization, Other)
  Sender: FDA-Public Use
  Company Number: US-TEVA-400300USA

PATIENT
  Sex: Male

DRUGS (1)
  1. PROAIR HFA [Suspect]
     Indication: ASTHMA
     Dates: start: 2009

REACTIONS (9)
  - Loss of consciousness [Unknown]
  - Unresponsive to stimuli [Unknown]
  - Anoxia [Fatal]
  - Brain injury [Fatal]
  - Anaphylactic reaction [Unknown]
  - Throat tightness [Unknown]
  - Pharyngeal oedema [Unknown]
  - Bronchial oedema [Unknown]
  - Drug hypersensitivity [Unknown]
